FAERS Safety Report 4919744-8 (Version None)
Quarter: 2006Q1

REPORT INFORMATION
  Report Type: 
  Country: None (occurrence: None)
  Receive Date: 20060221
  Receipt Date: 20060207
  Transmission Date: 20060701
  Serious: Yes (Hospitalization, Other)
  Sender: FDA-Public Use
  Company Number: 2006005548

PATIENT
  Age: 48 Year
  Sex: Female
  Weight: 57 kg

DRUGS (5)
  1. NASANYL (NAPERALIN ACETATE) [Suspect]
     Indication: ANAEMIA
     Dosage: NASAL
     Route: 045
     Dates: start: 20051001, end: 20051217
  2. TRANSAMIN (TRANEXAMIC ACID) [Concomitant]
  3. TETUCUR (FERROPOLIMALER) [Concomitant]
  4. FELTASE (ENZYMES NOS) [Concomitant]
  5. TSUKISHI AM (ALUMINIUM HYDROXIDE GEL, DRIED, CALCIUM CARBONATE, LIPASE [Concomitant]

REACTIONS (5)
  - BRAIN OEDEMA [None]
  - CEREBRAL HAEMORRHAGE [None]
  - DEEP VEIN THROMBOSIS [None]
  - DEPRESSED LEVEL OF CONSCIOUSNESS [None]
  - HAEMORRHAGIC CEREBRAL INFARCTION [None]
